FAERS Safety Report 4472616-8 (Version None)
Quarter: 2004Q4

REPORT INFORMATION
  Report Type: 
  Country: None (occurrence: None)
  Receive Date: 20041008
  Receipt Date: 20040929
  Transmission Date: 20050328
  Serious: Yes (Other)
  Sender: FDA-Public Use
  Company Number: 2004-06-2149

PATIENT
  Age: 32 Year
  Sex: Male
  Weight: 70 kg

DRUGS (3)
  1. VIRAFERONPEG [Suspect]
     Indication: HEPATITIS C
     Dosage: SUBCUTANEOUS
     Route: 058
     Dates: start: 20040614, end: 20040626
  2. REBETOL [Suspect]
     Indication: HEPATITIS C
     Dosage: 1000 MG QD ORAL
     Route: 048
     Dates: start: 20040614, end: 20040626
  3. METHADONE HCL [Concomitant]

REACTIONS (5)
  - DRUG HYPERSENSITIVITY [None]
  - GINGIVAL BLEEDING [None]
  - GINGIVAL OEDEMA [None]
  - RASH PAPULAR [None]
  - RASH PRURITIC [None]
